FAERS Safety Report 8584963-9 (Version None)
Quarter: 2012Q3

REPORT INFORMATION
  Report Type: 
  Country: None (occurrence: None)
  Receive Date: 20120810
  Receipt Date: 20120802
  Transmission Date: 20120928
  Serious: Yes (Hospitalization)
  Sender: FDA-Public Use
  Company Number: US-BAYER-2012-018963

PATIENT
  Age: 31 Year
  Sex: Female
  Weight: 50 kg

DRUGS (2)
  1. YAZ [Suspect]
  2. YAZ [Suspect]
     Dosage: UNK
     Dates: start: 20080101, end: 20090301

REACTIONS (5)
  - CEREBROVASCULAR ACCIDENT [None]
  - PSYCHOLOGICAL TRAUMA [None]
  - ANXIETY [None]
  - PAIN [None]
  - EMOTIONAL DISTRESS [None]
